FAERS Safety Report 8380885-7 (Version None)
Quarter: 2012Q2

REPORT INFORMATION
  Report Type: 
  Country: None (occurrence: None)
  Receive Date: 20120523
  Receipt Date: 20120517
  Transmission Date: 20120825
  Serious: Yes (Hospitalization, Disabling)
  Sender: FDA-Public Use
  Company Number: US-MERCK-1106USA03115

PATIENT
  Age: 58 Year
  Sex: Female
  Weight: 68 kg

DRUGS (16)
  1. GLEEVEC [Concomitant]
     Route: 065
     Dates: start: 19991201
  2. FOSAMAX [Suspect]
     Indication: OSTEOPENIA
     Route: 048
     Dates: start: 20020713, end: 20090601
  3. ALENDRONATE SODIUM [Suspect]
     Route: 048
     Dates: start: 20090801
  4. IMITREX [Concomitant]
     Route: 065
     Dates: start: 19991101, end: 20060101
  5. VITAMINS (UNSPECIFIED) [Concomitant]
     Route: 065
  6. ALENDRONATE SODIUM [Suspect]
     Route: 048
     Dates: start: 20091001
  7. KLONOPIN [Concomitant]
     Route: 065
     Dates: start: 19990401
  8. LOMOTIL [Concomitant]
     Route: 065
     Dates: start: 19990401
  9. ZOLOFT [Concomitant]
     Route: 065
     Dates: start: 19990501
  10. ALENDRONATE SODIUM [Suspect]
     Route: 048
     Dates: start: 20080901
  11. NEURONTIN [Concomitant]
     Route: 065
     Dates: start: 19990601
  12. PATANOL [Concomitant]
     Route: 065
     Dates: start: 19920901
  13. DONNATAL [Concomitant]
     Route: 065
     Dates: start: 19990401
  14. VERAPAMIL [Concomitant]
     Route: 065
     Dates: start: 20021001
  15. PRILOSEC [Concomitant]
     Route: 065
     Dates: start: 19921001
  16. PREMARIN [Concomitant]
     Route: 065
     Dates: start: 19900101, end: 20020101

REACTIONS (38)
  - ADVERSE DRUG REACTION [None]
  - DERMATITIS [None]
  - JOINT EFFUSION [None]
  - TRIGGER FINGER [None]
  - SINUS TACHYCARDIA [None]
  - EXOSTOSIS [None]
  - NASAL SEPTUM DEVIATION [None]
  - SLEEP APNOEA SYNDROME [None]
  - FEMUR FRACTURE [None]
  - OSTEOPOROSIS [None]
  - BREAST NEOPLASM [None]
  - PALPITATIONS [None]
  - NON-CARDIAC CHEST PAIN [None]
  - UPPER RESPIRATORY TRACT INFECTION [None]
  - PAIN IN EXTREMITY [None]
  - MICTURITION URGENCY [None]
  - BURSITIS [None]
  - EYELID OEDEMA [None]
  - SWELLING [None]
  - DYSPHONIA [None]
  - DYSPHAGIA [None]
  - MITRAL VALVE CALCIFICATION [None]
  - VITAMIN D DECREASED [None]
  - POLLAKIURIA [None]
  - STRESS FRACTURE [None]
  - DRY MOUTH [None]
  - LOW TURNOVER OSTEOPATHY [None]
  - LIGAMENT SPRAIN [None]
  - HYPERTRIGLYCERIDAEMIA [None]
  - ARTHRALGIA [None]
  - VISION BLURRED [None]
  - FALL [None]
  - TENDINOUS CONTRACTURE [None]
  - SCIATICA [None]
  - EPICONDYLITIS [None]
  - PERICARDIAL EFFUSION [None]
  - MUSCLE SPASMS [None]
  - JOINT HYPEREXTENSION [None]
